FAERS Safety Report 18356488 (Version 6)
Quarter: 2020Q4

REPORT INFORMATION
  Report Type: Report from Study
  Country: US (occurrence: US)
  Receive Date: 20201007
  Receipt Date: 20201229
  Transmission Date: 20210114
  Serious: Yes (Hospitalization, Other)
  Sender: FDA-Public Use
  Company Number: US-B.I. PHARMACEUTICALS,INC./RIDGEFIELD-2019-MR-111258

PATIENT
  Age: 84 Year
  Sex: Male

DRUGS (2)
  1. OFEV [Suspect]
     Active Substance: NINTEDANIB
     Route: 048
     Dates: start: 20191114
  2. OFEV [Suspect]
     Active Substance: NINTEDANIB
     Indication: IDIOPATHIC PULMONARY FIBROSIS
     Route: 048
     Dates: start: 20190906

REACTIONS (18)
  - Thrombosis [Not Recovered/Not Resolved]
  - Gastric disorder [Unknown]
  - Respiration abnormal [Unknown]
  - Perforated ulcer [Unknown]
  - Diarrhoea [Unknown]
  - Gastric ulcer [Not Recovered/Not Resolved]
  - Internal haemorrhage [Unknown]
  - Dry skin [Unknown]
  - Diarrhoea [Recovered/Resolved]
  - Movement disorder [Unknown]
  - Back injury [Unknown]
  - Cough [Unknown]
  - Fall [Unknown]
  - Haematochezia [Not Recovered/Not Resolved]
  - Ulcer [Unknown]
  - Peripheral swelling [Unknown]
  - Pruritus [Unknown]
  - Dyspnoea [Unknown]
